FAERS Safety Report 9702234 (Version 1)
Quarter: 2013Q4

REPORT INFORMATION
  Report Type: Report from Study
  Country: US (occurrence: US)
  Receive Date: 20131121
  Receipt Date: 20131121
  Transmission Date: 20140711
  Serious: Yes (Other)
  Sender: FDA-Public Use
  Company Number: US-CELGENEUS-163-50794-13113275

PATIENT
  Sex: 0

DRUGS (4)
  1. VIDAZA [Suspect]
     Indication: MYELODYSPLASTIC SYNDROME
     Route: 058
  2. PLERIXAFOR [Suspect]
     Indication: MYELODYSPLASTIC SYNDROME
     Route: 058
  3. GRANULOCYTE COLONY-STIMULATING FACTOR NOS [Suspect]
     Indication: MYELODYSPLASTIC SYNDROME
     Route: 058
  4. GRANULOCYTE COLONY-STIMULATING FACTOR NOS [Suspect]
     Route: 058

REACTIONS (13)
  - Leukocytosis [Unknown]
  - Leukostasis syndrome [Unknown]
  - Leukocytosis [Unknown]
  - Epistaxis [Unknown]
  - Hypocalcaemia [Unknown]
  - Thrombocytosis [Unknown]
  - Gastrointestinal haemorrhage [Unknown]
  - Headache [Unknown]
  - Dyspnoea [Unknown]
  - Infection [Unknown]
  - Neutropenia [Unknown]
  - Bone pain [Unknown]
  - Leukaemia [Unknown]
